FAERS Safety Report 13423199 (Version 2)
Quarter: 2017Q2

REPORT INFORMATION
  Report Type: Spontaneous
  Country: ES (occurrence: ES)
  Receive Date: 20170410
  Receipt Date: 20170526
  Transmission Date: 20170830
  Serious: Yes (Other)
  Sender: FDA-Public Use
  Company Number: ES-AMGEN-ESPSP2017051907

PATIENT
  Sex: Female

DRUGS (3)
  1. CONDROSAN [Concomitant]
  2. PROLIA [Suspect]
     Active Substance: DENOSUMAB
     Indication: OSTEOPOROSIS
     Dosage: UNK
     Route: 065
  3. IDEOS [Concomitant]
     Active Substance: CALCIUM CARBONATE\CHOLECALCIFEROL
     Dosage: UNK

REACTIONS (13)
  - Vitamin D increased [Unknown]
  - Fluid retention [Unknown]
  - Musculoskeletal stiffness [Recovered/Resolved]
  - Burning sensation [Recovered/Resolved]
  - Vitamin B12 increased [Unknown]
  - Peripheral swelling [Recovered/Resolved]
  - Paraesthesia [Recovered/Resolved]
  - Fatigue [Recovered/Resolved]
  - Arthropathy [Unknown]
  - Vision blurred [Recovered/Resolved]
  - Thyroid mass [Unknown]
  - Weight increased [Unknown]
  - Contusion [Recovering/Resolving]

NARRATIVE: CASE EVENT DATE: 2017
